FAERS Safety Report 19968748 (Version 1)
Quarter: 2021Q4

REPORT INFORMATION
  Report Type: Spontaneous
  Country: US (occurrence: US)
  Receive Date: 20211015
  Receipt Date: 20211015
  Transmission Date: 20220303
  Serious: Yes (Death)
  Sender: FDA-Public Use
  Company Number: None

PATIENT
  Age: 84 Year
  Sex: Male

DRUGS (2)
  1. ESBRIET [Suspect]
     Active Substance: PIRFENIDONE
     Indication: Idiopathic pulmonary fibrosis
     Dosage: ?          OTHER FREQUENCY:2-3 TIMES A DAY;
     Route: 048
     Dates: start: 20210211, end: 20210214
  2. ROBITUSSIN MIS SEVERE [Concomitant]

REACTIONS (2)
  - Idiopathic pulmonary fibrosis [None]
  - Respiratory failure [None]

NARRATIVE: CASE EVENT DATE: 20211014
